FAERS Safety Report 12105502 (Version 1)
Quarter: 2016Q1

REPORT INFORMATION
  Report Type: Report from Study
  Country: MX (occurrence: MX)
  Receive Date: 20160223
  Receipt Date: 20160223
  Transmission Date: 20160526
  Serious: Yes (Other)
  Sender: FDA-Public Use
  Company Number: MX-ABBVIE-16P-107-1562467-00

PATIENT
  Sex: Female
  Weight: 60 kg

DRUGS (2)
  1. VIEKIRA PAK [Suspect]
     Active Substance: DASABUVIR\OMBITASVIR\PARITAPREVIR\RITONAVIR
     Indication: HEPATITIS C
     Dosage: 3 IN THE MORNING, 1 AT NIGHT
     Route: 048
     Dates: start: 20151017, end: 20160108
  2. RIBAVIRIN. [Concomitant]
     Active Substance: RIBAVIRIN
     Indication: HEPATITIS C
     Dosage: 1 IN THE MORNING, 1 AT NIGHT
     Route: 048
     Dates: start: 20151017, end: 20160108

REACTIONS (4)
  - Hepatic encephalopathy [Not Recovered/Not Resolved]
  - Blood pressure increased [Not Recovered/Not Resolved]
  - Fatigue [Not Recovered/Not Resolved]
  - Alopecia [Not Recovered/Not Resolved]
